FAERS Safety Report 9543544 (Version 2)
Quarter: 2013Q3

REPORT INFORMATION
  Report Type: Report from Study
  Country: US (occurrence: US)
  Receive Date: 20130923
  Receipt Date: 20130923
  Transmission Date: 20140515
  Serious: Yes (Hospitalization)
  Sender: FDA-Public Use
  Company Number: US-ABBVIE-13P-163-1122152-00

PATIENT
  Age: 51 Year
  Sex: Female

DRUGS (11)
  1. HUMIRA [Suspect]
     Indication: COLITIS ULCERATIVE
     Dates: start: 20130620, end: 20130620
  2. HUMIRA [Suspect]
     Dates: start: 20130704, end: 20130704
  3. HUMIRA [Suspect]
     Dates: start: 20130718
  4. PREMPRO [Suspect]
     Indication: IRRITABILITY
     Dosage: LOWEST DOSE
  5. PREMPRO [Suspect]
     Indication: HOT FLUSH
  6. PREMPRO [Suspect]
     Indication: MENOPAUSAL SYMPTOMS
  7. LOTREL [Concomitant]
     Indication: HYPERTENSION
     Dosage: 5/20MG X 2 A DAY
  8. LEXAPRO [Concomitant]
     Indication: DEPRESSION
  9. ARMOUR THYROID [Concomitant]
     Indication: HYPOTHYROIDISM
  10. KLONOPIN [Concomitant]
     Indication: PANIC ATTACK
  11. KLONOPIN [Concomitant]
     Indication: ANXIETY

REACTIONS (3)
  - Haematochezia [Recovering/Resolving]
  - Diarrhoea [Not Recovered/Not Resolved]
  - Drug ineffective [Unknown]
